FAERS Safety Report 5472995-9 (Version None)
Quarter: 2007Q4

REPORT INFORMATION
  Report Type: 
  Country: None (occurrence: None)
  Receive Date: 20071001
  Receipt Date: 20070404
  Transmission Date: 20080405
  Serious: Yes (Other)
  Sender: FDA-Public Use
  Company Number: US-ASTRAZENECA-2007UW01830

PATIENT
  Age: 51 Year
  Sex: Female
  Weight: 100.9 kg

DRUGS (7)
  1. ARIMIDEX [Suspect]
     Indication: BREAST CANCER
     Route: 048
  2. ARIMIDEX [Suspect]
     Route: 048
  3. DARVOCET [Concomitant]
  4. SOMA [Concomitant]
  5. SYNTHROID [Concomitant]
  6. EFFEXOR [Concomitant]
  7. MULTI-VITAMIN [Concomitant]

REACTIONS (10)
  - ALOPECIA [None]
  - ARTHRALGIA [None]
  - ARTHRITIS [None]
  - BLOOD CHOLESTEROL INCREASED [None]
  - DRY SKIN [None]
  - HOT FLUSH [None]
  - HYPERTENSION [None]
  - JOINT SWELLING [None]
  - WEIGHT INCREASED [None]
  - WRIST FRACTURE [None]
